FAERS Safety Report 7528855-2 (Version None)
Quarter: 2011Q2

REPORT INFORMATION
  Report Type: 
  Country: None (occurrence: None)
  Receive Date: 20110607
  Receipt Date: 20101124
  Transmission Date: 20111010
  Serious: No
  Sender: FDA-Public Use
  Company Number: US-ASTRAZENECA-2010SE57713

PATIENT
  Sex: Female

DRUGS (4)
  1. AMLODIPINE [Concomitant]
     Dosage: UNKNOWN
  2. VITAMINS [Concomitant]
     Dosage: UNKNOWN
  3. PRILOSEC OTC [Suspect]
     Route: 048
     Dates: start: 20100901
  4. ASACOL [Concomitant]
     Dosage: UNKNOWN

REACTIONS (4)
  - PRURITUS [None]
  - INCORRECT DRUG ADMINISTRATION DURATION [None]
  - SKIN IRRITATION [None]
  - CONSTIPATION [None]
